FAERS Safety Report 25809059 (Version 2)
Quarter: 2025Q4

REPORT INFORMATION
  Report Type: Report from Study
  Country: EG (occurrence: EG)
  Receive Date: 20250916
  Receipt Date: 20251002
  Transmission Date: 20260117
  Serious: Yes (Hospitalization)
  Sender: NOVO NORDISK
  Company Number: EG-NOVOPROD-1519941

PATIENT
  Age: 14 Year
  Sex: Male
  Weight: 57 kg

DRUGS (3)
  1. LANTUS [Concomitant]
     Active Substance: INSULIN GLARGINE
     Indication: Type 1 diabetes mellitus
     Dosage: 22 IU, QD(NIGHT)
     Route: 058
  2. NOVORAPID [Suspect]
     Active Substance: INSULIN ASPART
     Dosage: UNK(USED AFTER 5TH DAY AT HOSPITAL)
     Route: 058
  3. NOVORAPID [Suspect]
     Active Substance: INSULIN ASPART
     Indication: Type 1 diabetes mellitus
     Dosage: 31 IU, QD (9 U AFTER BREAKFAST, 12 U AFTER LUNCH AND 10 U AFTER DINNER)
     Route: 058

REACTIONS (4)
  - Hyperglycaemia [Not Recovered/Not Resolved]
  - Diabetic ketosis [Not Recovered/Not Resolved]
  - Device malfunction [Unknown]
  - Wrong technique in product usage process [Unknown]

NARRATIVE: CASE EVENT DATE: 20250101
